FAERS Safety Report 16098632 (Version 1)
Quarter: 2019Q1

REPORT INFORMATION
  Report Type: Spontaneous
  Country: FR (occurrence: FR)
  Receive Date: 20190321
  Receipt Date: 20190321
  Transmission Date: 20190418
  Serious: Yes (Death)
  Sender: FDA-Public Use
  Company Number: FR-CELLTRION INC.-2019FR017991

PATIENT

DRUGS (4)
  1. HERZUMA [Suspect]
     Active Substance: TRASTUZUMAB-PKRB
     Indication: INVASIVE DUCTAL BREAST CARCINOMA
     Dosage: 410 MG
     Route: 042
     Dates: start: 20190111
  2. ACUPAN [Concomitant]
     Active Substance: NEFOPAM HYDROCHLORIDE
     Dosage: ONE AMPOULE ON A SUGAR LUMP
     Dates: start: 20190111
  3. PARACETAMOL [Concomitant]
     Active Substance: ACETAMINOPHEN
     Dosage: 1 G
     Route: 048
     Dates: start: 20190111
  4. INEXIUM                            /01479302/ [Concomitant]
     Active Substance: ESOMEPRAZOLE MAGNESIUM
     Dosage: 60 MG, QD
     Dates: start: 20190110

REACTIONS (4)
  - Oxygen saturation decreased [Fatal]
  - Respiratory distress [Fatal]
  - Hypotension [Fatal]
  - Tachycardia [Fatal]

NARRATIVE: CASE EVENT DATE: 20190111
